FAERS Safety Report 12742037 (Version 1)
Quarter: 2016Q3

REPORT INFORMATION
  Report Type: Spontaneous
  Country: US (occurrence: US)
  Receive Date: 20160914
  Receipt Date: 20160914
  Transmission Date: 20161109
  Serious: No
  Sender: FDA-Public Use
  Company Number: US-TEVA-692748USA

PATIENT
  Age: 54 Year
  Sex: Female

DRUGS (15)
  1. FISH OIL [Concomitant]
     Active Substance: FISH OIL
  2. VICODIN [Concomitant]
     Active Substance: ACETAMINOPHEN\HYDROCODONE BITARTRATE
  3. OXYCONTIN [Concomitant]
     Active Substance: OXYCODONE HYDROCHLORIDE
  4. TRILIPIX [Concomitant]
     Active Substance: FENOFIBRIC ACID
  5. CHERATUSSIN [Concomitant]
     Active Substance: AMMONIUM CHLORIDE\DEXTROMETHORPHAN\SODIUM CITRATE
  6. TEMAZEPAM. [Concomitant]
     Active Substance: TEMAZEPAM
  7. ALPRAZOLAM. [Concomitant]
     Active Substance: ALPRAZOLAM
  8. LUNESTA [Concomitant]
     Active Substance: ESZOPICLONE
  9. COPAXONE [Suspect]
     Active Substance: GLATIRAMER ACETATE
     Indication: MULTIPLE SCLEROSIS
     Route: 058
     Dates: start: 201507
  10. ROZEREM [Concomitant]
     Active Substance: RAMELTEON
  11. HYDROCO/APAP [Concomitant]
     Active Substance: ACETAMINOPHEN\HYDROCODONE
  12. FENOFIBRATE. [Concomitant]
     Active Substance: FENOFIBRATE
  13. XANAX [Concomitant]
     Active Substance: ALPRAZOLAM
  14. AMBIEN CR [Concomitant]
     Active Substance: ZOLPIDEM TARTRATE
  15. AZITHROMYCIN ANHYDROUS. [Concomitant]
     Active Substance: AZITHROMYCIN ANHYDROUS

REACTIONS (1)
  - Fall [Recovered/Resolved]

NARRATIVE: CASE EVENT DATE: 201607
